FAERS Safety Report 4633771-X (Version None)
Quarter: 2005Q2

REPORT INFORMATION
  Report Type: 
  Country: None (occurrence: None)
  Receive Date: 20050325
  Receipt Date: 20041221
  Transmission Date: 20051028
  Serious: No
  Sender: FDA-Public Use
  Company Number: USA041286743

PATIENT
  Age: 76 Year
  Sex: Female

DRUGS (3)
  1. FORTEO [Suspect]
     Indication: OSTEOPOROSIS
     Dates: start: 20041015, end: 20041209
  2. BLOOD PRESSURE MEDICINE [Concomitant]
  3. CALCIUM GLUCONATE [Concomitant]

REACTIONS (4)
  - ASTHENIA [None]
  - PALPITATIONS [None]
  - STOMACH DISCOMFORT [None]
  - VOMITING [None]
